FAERS Safety Report 12892151 (Version 2)
Quarter: 2016Q4

REPORT INFORMATION
  Report Type: Spontaneous
  Country: BR (occurrence: BR)
  Receive Date: 20161028
  Receipt Date: 20161104
  Transmission Date: 20170207
  Serious: Yes (Other)
  Sender: FDA-Public Use
  Company Number: BR-009507513-1610BRA012637

PATIENT
  Age: 83 Year
  Sex: Female

DRUGS (5)
  1. PROPOFOL. [Concomitant]
     Active Substance: PROPOFOL
     Dosage: 100 MG, UNK, FORMULATION: SOLUTION
     Route: 042
  2. ROCURONIUM BROMIDE. [Suspect]
     Active Substance: ROCURONIUM BROMIDE
     Dosage: 50 MG, ONCE
     Route: 042
     Dates: start: 20160720, end: 20160720
  3. BRIDION [Suspect]
     Active Substance: SUGAMMADEX
     Dosage: 200 MG, ONCE
     Route: 042
     Dates: start: 20160720, end: 20160720
  4. METRONIDAZOLE. [Concomitant]
     Active Substance: METRONIDAZOLE
     Dosage: 1 G, UNK
     Route: 042
  5. FENTANYL. [Concomitant]
     Active Substance: FENTANYL
     Dosage: 250 MG, UNK
     Route: 042

REACTIONS (5)
  - Hypoxia [Recovered/Resolved]
  - Anaphylactic reaction [Recovered/Resolved]
  - Urticaria [Recovered/Resolved]
  - Respiratory failure [Recovered/Resolved]
  - Diastolic hypotension [Recovered/Resolved]

NARRATIVE: CASE EVENT DATE: 20160720
